FAERS Safety Report 4414491-3 (Version None)
Quarter: 2004Q3

REPORT INFORMATION
  Report Type: 
  Country: None (occurrence: None)
  Receive Date: 20040702
  Receipt Date: 20040105
  Transmission Date: 20050211
  Serious: Yes (Hospitalization)
  Sender: FDA-Public Use
  Company Number: 355282

PATIENT
  Sex: Female

DRUGS (4)
  1. KLONOPIN [Suspect]
     Indication: ANXIETY
     Dosage: 0.5 MG DAILY ORAL
     Route: 048
     Dates: start: 19840615
  2. KLONOPIN [Suspect]
     Indication: PANIC ATTACK
     Dosage: 0.5 MG DAILY ORAL
     Route: 048
     Dates: start: 19840615
  3. SEROQUEL [Concomitant]
  4. ZOLOFT [Concomitant]

REACTIONS (24)
  - AMNESIA [None]
  - ANXIETY [None]
  - DEPRESSION [None]
  - DISTURBANCE IN ATTENTION [None]
  - DIZZINESS [None]
  - DRUG WITHDRAWAL SYNDROME [None]
  - DRY MOUTH [None]
  - FATIGUE [None]
  - HAIR GROWTH ABNORMAL [None]
  - HALLUCINATION [None]
  - HYPERTRICHOSIS [None]
  - HYPOAESTHESIA [None]
  - INSOMNIA [None]
  - MIGRAINE [None]
  - MOOD SWINGS [None]
  - PALPITATIONS [None]
  - PANIC ATTACK [None]
  - PARAESTHESIA [None]
  - PSYCHOTIC DISORDER [None]
  - RASH [None]
  - SUICIDAL IDEATION [None]
  - SUICIDE ATTEMPT [None]
  - TREMOR [None]
  - VERTIGO [None]
